FAERS Safety Report 24772807 (Version 1)
Quarter: 2024Q4

REPORT INFORMATION
  Report Type: Spontaneous
  Country: GB (occurrence: GB)
  Receive Date: 20241225
  Receipt Date: 20241225
  Transmission Date: 20250115
  Serious: Yes (Other)
  Sender: TEVA
  Company Number: None

PATIENT
  Age: 67 Year

DRUGS (2)
  1. LEVOTHYROXINE [Suspect]
     Active Substance: LEVOTHYROXINE
     Indication: Thyroidectomy
     Dosage: 125, TEVA UK
     Route: 065
     Dates: start: 2021
  2. THYROXINE [Suspect]
     Active Substance: LEVOTHYROXINE
     Indication: Product used for unknown indication
     Dosage: HILLCROSS
     Route: 065

REACTIONS (3)
  - Product substitution issue [Unknown]
  - Abdominal distension [Unknown]
  - Diarrhoea [Not Recovered/Not Resolved]

NARRATIVE: CASE EVENT DATE: 20211110
